FAERS Safety Report 14619602 (Version 2)
Quarter: 2018Q2

REPORT INFORMATION
  Report Type: Spontaneous
  Country: FR (occurrence: FR)
  Receive Date: 20180309
  Receipt Date: 20180611
  Transmission Date: 20180711
  Serious: Yes (Life-Threatening, Hospitalization, Other)
  Sender: FDA-Public Use
  Company Number: FR-AUROBINDO-AUR-APL-2018-012008

PATIENT
  Sex: Male
  Weight: 4.64 kg

DRUGS (4)
  1. OLANZAPINE. [Suspect]
     Active Substance: OLANZAPINE
     Indication: PRODUCT USED FOR UNKNOWN INDICATION
     Dosage: 20 MG, QD
     Route: 064
  2. HALOPERIDOL. [Suspect]
     Active Substance: HALOPERIDOL
     Indication: FOETAL EXPOSURE DURING PREGNANCY
     Dosage: 50 MILLIGRAM
     Route: 064
  3. OLANZAPINE. [Suspect]
     Active Substance: OLANZAPINE
     Indication: FOETAL EXPOSURE DURING PREGNANCY
     Dosage: 15 MG, QD
     Route: 064
  4. INSULIN [Suspect]
     Active Substance: INSULIN NOS
     Indication: FOETAL EXPOSURE DURING PREGNANCY
     Dosage: MATERNAL DOSE UNKNOWN ()
     Route: 064

REACTIONS (10)
  - Coma [Unknown]
  - Foetal arrhythmia [Unknown]
  - Foetal exposure during pregnancy [Unknown]
  - Drug level above therapeutic [Unknown]
  - Hypotonia neonatal [Unknown]
  - Tremor [Unknown]
  - Hypoglycaemia neonatal [Recovered/Resolved]
  - Neonatal respiratory distress [Unknown]
  - Toxicity to various agents [Unknown]
  - Foetal heart rate abnormal [Unknown]
